FAERS Safety Report 4430825-8 (Version None)
Quarter: 2004Q3

REPORT INFORMATION
  Report Type: 
  Country: None (occurrence: None)
  Receive Date: 20040823
  Receipt Date: 20040329
  Transmission Date: 20050211
  Serious: Yes (Disabling)
  Sender: FDA-Public Use
  Company Number: GB-MERCK-0403GBR00304

PATIENT
  Age: 64 Year
  Sex: Female

DRUGS (3)
  1. DOTHIEPIN HYDROCHLORIDE [Concomitant]
     Indication: DEPRESSION
     Route: 065
     Dates: start: 20010101
  2. ISOCARBOXAZID [Concomitant]
     Indication: DEPRESSION
     Route: 065
     Dates: start: 19970101
  3. ZOCOR [Suspect]
     Indication: HYPERCHOLESTEROLAEMIA
     Route: 048
     Dates: start: 19990101, end: 20031101

REACTIONS (4)
  - AMYOTROPHIC LATERAL SCLEROSIS [None]
  - DYSPHAGIA [None]
  - SPEECH DISORDER [None]
  - THROAT IRRITATION [None]
